FAERS Safety Report 20664371 (Version 1)
Quarter: 2022Q2

REPORT INFORMATION
  Report Type: Spontaneous
  Country: JP (occurrence: None)
  Receive Date: 20220401
  Receipt Date: 20220401
  Transmission Date: 20220721
  Serious: Yes (Hospitalization)
  Sender: FDA-Public Use
  Company Number: 2019SF72499

PATIENT
  Age: 63 Year
  Sex: Female

DRUGS (4)
  1. LYNPARZA [Suspect]
     Active Substance: OLAPARIB
     Indication: Breast cancer
     Route: 048
     Dates: start: 20191031, end: 202102
  2. AMLODIPINE BESYLATE [Concomitant]
     Active Substance: AMLODIPINE BESYLATE
     Dosage: DOSE UNKNOWN
     Route: 048
  3. LOXOPROFEN SODIUM [Concomitant]
     Active Substance: LOXOPROFEN SODIUM
     Dosage: DOSE UNKNOWN, AS REQUIRED
     Route: 065
  4. REBAMIPIDE [Concomitant]
     Active Substance: REBAMIPIDE
     Dosage: DOSE UNKNOWN, AS REQUIRED
     Route: 065

REACTIONS (4)
  - Polyarteritis nodosa [Not Recovered/Not Resolved]
  - Erythema [Recovered/Resolved]
  - Oedema peripheral [Recovered/Resolved]
  - Pyrexia [Recovered/Resolved]

NARRATIVE: CASE EVENT DATE: 20190101
